FAERS Safety Report 12622564 (Version 6)
Quarter: 2016Q3

REPORT INFORMATION
  Report Type: Report from Study
  Country: CN (occurrence: CN)
  Receive Date: 20160804
  Receipt Date: 20160913
  Transmission Date: 20161109
  Serious: Yes (Other)
  Sender: FDA-Public Use
  Company Number: PHHY2016CN104449

PATIENT
  Age: 52 Year
  Sex: Male

DRUGS (196)
  1. MYFORTIC [Suspect]
     Active Substance: MYCOPHENOLATE SODIUM
     Indication: RENAL TRANSPLANT
     Dosage: 720 MG, QD
     Route: 048
     Dates: start: 20160115, end: 20160115
  2. MYFORTIC [Suspect]
     Active Substance: MYCOPHENOLATE SODIUM
     Dosage: 1440 MG, QD
     Route: 048
     Dates: start: 20160116, end: 20160131
  3. CICLOSPORIN [Suspect]
     Active Substance: CYCLOSPORINE
     Indication: PRODUCT USED FOR UNKNOWN INDICATION
     Dosage: 200 MG, QD
     Route: 065
     Dates: start: 20160223, end: 20160224
  4. METHYLPREDNISOLONE. [Suspect]
     Active Substance: METHYLPREDNISOLONE
     Indication: ANTIALLERGIC THERAPY
     Dosage: 400 MG, QD
     Route: 065
     Dates: start: 20160118, end: 20160118
  5. METHYLPREDNISOLONE. [Suspect]
     Active Substance: METHYLPREDNISOLONE
     Dosage: 40 MG, PRN
     Route: 042
     Dates: start: 20160126, end: 20160126
  6. SODIUM CHLORIDE. [Concomitant]
     Active Substance: SODIUM CHLORIDE
     Dosage: 50 ML, PRN
     Route: 042
     Dates: start: 20160202, end: 20160202
  7. HEPARIN SODIUM. [Concomitant]
     Active Substance: HEPARIN SODIUM
     Indication: PRODUCT USED FOR UNKNOWN INDICATION
     Dosage: 6250 IU, QD
     Route: 042
     Dates: start: 20160116, end: 20160116
  8. RECOMBINANT HUMAN ERYTHROPOIETIN [Concomitant]
     Active Substance: ERYTHROPOIETIN
     Dosage: 6000 IU, PRN
     Route: 042
     Dates: start: 20160209, end: 20160209
  9. CARDURA [Concomitant]
     Active Substance: DOXAZOSIN MESYLATE
     Indication: HYPERTENSION
     Dosage: 4 MG, BID
     Route: 048
     Dates: start: 20160210, end: 20160222
  10. CRAVIT [Concomitant]
     Active Substance: LEVOFLOXACIN
     Indication: INFECTION PROPHYLAXIS
     Dosage: 100 ML, PRN
     Route: 042
     Dates: start: 20160211, end: 20160211
  11. LIVARACINE [Concomitant]
     Dosage: 2500 IU, PRN
     Route: 042
     Dates: start: 20160119, end: 20160119
  12. ALPROSTADIL. [Concomitant]
     Active Substance: ALPROSTADIL
     Dosage: 10 MG, PRN
     Route: 042
     Dates: start: 20160116, end: 20160116
  13. IRON SUCROSE [Concomitant]
     Active Substance: IRON SUCROSE
     Indication: PRODUCT USED FOR UNKNOWN INDICATION
     Dosage: 1 DF, PRN
     Route: 042
     Dates: start: 20160125, end: 20160125
  14. IRON SUCROSE [Concomitant]
     Active Substance: IRON SUCROSE
     Dosage: 1 DF, PRN
     Route: 042
     Dates: start: 20160215, end: 20160215
  15. CEFOTIAM HYDROCHLORIDE [Concomitant]
     Active Substance: CEFOTIAM HYDROCHLORIDE
     Indication: ANTIINFLAMMATORY THERAPY
     Dosage: 2000 MG, BID
     Route: 042
     Dates: start: 20160116, end: 20160122
  16. FUROSEMIDE. [Concomitant]
     Active Substance: FUROSEMIDE
     Dosage: 200 MG, PRN
     Route: 042
     Dates: start: 20160202, end: 20160202
  17. FUROSEMIDE. [Concomitant]
     Active Substance: FUROSEMIDE
     Dosage: 40 MG, PRN
     Route: 042
     Dates: start: 20160306, end: 20160306
  18. FUROSEMIDE. [Concomitant]
     Active Substance: FUROSEMIDE
     Dosage: 80 MG, PRN
     Route: 042
     Dates: start: 20160227, end: 20160227
  19. FUROSEMIDE. [Concomitant]
     Active Substance: FUROSEMIDE
     Dosage: 40 MG, PRN
     Route: 042
     Dates: start: 20160131, end: 20160131
  20. DOPAMINE HYDROCHLORIDE. [Concomitant]
     Active Substance: DOPAMINE HYDROCHLORIDE
     Dosage: 10 MG, PRN
     Route: 042
     Dates: start: 20160203, end: 20160203
  21. DICLOFENAC SODIUM W/LIDOCAINE HYDROCHLORIDE [Concomitant]
     Indication: SEIZURE
     Dosage: 1 DF, QD
     Route: 030
     Dates: start: 20160116, end: 20160116
  22. ERYTHROPOIETIN HUMAN [Concomitant]
     Dosage: 9999 IU, PRN
     Route: 042
     Dates: start: 20160219, end: 20160219
  23. ERYTHROPOIETIN HUMAN [Concomitant]
     Dosage: 9999 IU, PRN
     Route: 042
     Dates: start: 20160222, end: 20160222
  24. ERYTHROPOIETIN HUMAN [Concomitant]
     Dosage: 9999 IU, PRN
     Route: 042
     Dates: start: 20160226, end: 20160226
  25. METHYLPREDNISOLONE. [Suspect]
     Active Substance: METHYLPREDNISOLONE
     Dosage: 40 MG, PRN
     Route: 042
     Dates: start: 20160126, end: 20160201
  26. METHYLPREDNISOLONE. [Suspect]
     Active Substance: METHYLPREDNISOLONE
     Dosage: 40 MG, PRN
     Route: 042
     Dates: start: 20160205, end: 20160205
  27. TACROLIMUS. [Suspect]
     Active Substance: TACROLIMUS
     Indication: PRODUCT USED FOR UNKNOWN INDICATION
     Dosage: 6 MG, QD
     Route: 065
     Dates: start: 20160116, end: 20160118
  28. TACROLIMUS. [Suspect]
     Active Substance: TACROLIMUS
     Dosage: 3 MG, QD
     Route: 065
     Dates: start: 20160213, end: 20160221
  29. SODIUM CHLORIDE. [Concomitant]
     Active Substance: SODIUM CHLORIDE
     Dosage: 1500 MG, PRN
     Route: 042
     Dates: start: 20160215, end: 20160215
  30. GLUCOSE [Concomitant]
     Active Substance: DEXTROSE
     Indication: PRODUCT USED FOR UNKNOWN INDICATION
     Dosage: 250 ML, PRN
     Route: 042
     Dates: start: 20160117, end: 20160117
  31. ALBUMIN [Concomitant]
     Active Substance: ALBUMIN HUMAN
     Dosage: 10 G, QD
     Route: 042
     Dates: start: 20160118, end: 20160118
  32. PHENOBARBITAL SODIUM. [Concomitant]
     Active Substance: PHENOBARBITAL SODIUM
     Indication: SEDATION
     Dosage: 100 MG, PRN
     Route: 030
     Dates: start: 20160115, end: 20160115
  33. ADALAT [Concomitant]
     Active Substance: NIFEDIPINE
     Dosage: 30 MG, QD
     Route: 048
     Dates: start: 20160116, end: 20160121
  34. TALCID [Concomitant]
     Active Substance: HYDROTALCITE
     Indication: GASTRITIS PROPHYLAXIS
     Dosage: 1000 MG, PRN
     Route: 048
     Dates: start: 20160118, end: 20160118
  35. RECOMBINANT HUMAN ERYTHROPOIETIN [Concomitant]
     Active Substance: ERYTHROPOIETIN
     Dosage: 6000 IU, PRN
     Route: 042
     Dates: start: 20160215, end: 20160215
  36. LIPITOR [Concomitant]
     Active Substance: ATORVASTATIN CALCIUM
     Indication: LIPIDS INCREASED
     Dosage: 20 MG, QD
     Route: 048
     Dates: start: 20160214, end: 20160309
  37. MICARDIS [Concomitant]
     Active Substance: TELMISARTAN
     Dosage: 80 MG, QD
     Route: 048
     Dates: start: 20160120, end: 20160120
  38. PANTOPRAZOLE [Concomitant]
     Active Substance: PANTOPRAZOLE SODIUM
     Dosage: 40 MG, QD
     Route: 048
     Dates: start: 20160121, end: 20160122
  39. BUDESONIDE. [Concomitant]
     Active Substance: BUDESONIDE
     Indication: PRODUCTIVE COUGH
     Dosage: 1 DF (VIAL), TID
     Route: 055
     Dates: start: 20160116, end: 20160129
  40. PENICILLIN [Concomitant]
     Active Substance: PENICILLIN
     Indication: SKIN TEST
     Dosage: 800000 IU, PRN
     Route: 023
     Dates: start: 20160214, end: 20160214
  41. IRON SUCROSE [Concomitant]
     Active Substance: IRON SUCROSE
     Dosage: 1 DF, PRN
     Route: 042
     Dates: start: 20160219, end: 20160219
  42. SODIUM BICARBONATE. [Concomitant]
     Active Substance: SODIUM BICARBONATE
     Indication: HYPERCHLORHYDRIA
     Dosage: 500 ML, PRN
     Route: 049
     Dates: start: 20160214, end: 20160214
  43. SODIUM BICARBONATE. [Concomitant]
     Active Substance: SODIUM BICARBONATE
     Dosage: 125 ML, PRN
     Route: 042
     Dates: start: 20160117, end: 20160117
  44. PIPERACILLIN/TAZOBACTAM [Concomitant]
     Active Substance: PIPERACILLIN SODIUM\TAZOBACTAM SODIUM
     Indication: ANTIINFLAMMATORY THERAPY
     Dosage: 1 DF (BOTTLE), TID
     Route: 042
     Dates: start: 20160214, end: 20160226
  45. FUROSEMIDE. [Concomitant]
     Active Substance: FUROSEMIDE
     Dosage: 280 MG, PRN
     Route: 042
     Dates: start: 20160219, end: 20160219
  46. FUROSEMIDE. [Concomitant]
     Active Substance: FUROSEMIDE
     Dosage: 40 MG, PRN
     Route: 042
     Dates: start: 20160116, end: 20160116
  47. FUROSEMIDE. [Concomitant]
     Active Substance: FUROSEMIDE
     Dosage: 40 MG, PRN
     Route: 042
     Dates: start: 20160302, end: 20160302
  48. FUROSEMIDE. [Concomitant]
     Active Substance: FUROSEMIDE
     Dosage: 40 MG, PRN
     Route: 042
     Dates: start: 20160305, end: 20160305
  49. FUROSEMIDE. [Concomitant]
     Active Substance: FUROSEMIDE
     Dosage: 80 MG, QD
     Route: 048
     Dates: start: 20160117, end: 20160117
  50. FUROSEMIDE. [Concomitant]
     Active Substance: FUROSEMIDE
     Dosage: 80 MG, PRN
     Route: 042
     Dates: start: 20160220, end: 20160220
  51. DOPAMINE HYDROCHLORIDE. [Concomitant]
     Active Substance: DOPAMINE HYDROCHLORIDE
     Dosage: 10 MG, PRN
     Route: 042
     Dates: start: 20160202, end: 20160202
  52. DOPAMINE HYDROCHLORIDE. [Concomitant]
     Active Substance: DOPAMINE HYDROCHLORIDE
     Dosage: 10 MG, PRN
     Route: 042
     Dates: start: 20160204, end: 20160204
  53. INSULIN [Concomitant]
     Active Substance: INSULIN NOS
     Dosage: 6 IU, PRN
     Route: 042
     Dates: start: 20160122, end: 20160122
  54. CEPHAZOLINE SODIUM [Concomitant]
     Active Substance: CEFAZOLIN SODIUM
     Dosage: 500 MG, PRN
     Route: 023
     Dates: start: 20160207, end: 20160207
  55. CEFOTIAM HYDROCHLORIDE [Concomitant]
     Active Substance: CEFOTIAM HYDROCHLORIDE
     Indication: ANTIINFLAMMATORY THERAPY
     Dosage: 2000 MG, BID
     Route: 042
     Dates: start: 20160116, end: 20160122
  56. MUCOSOLVAN [Concomitant]
     Active Substance: AMBROXOL HYDROCHLORIDE
     Dosage: 30 MG, QD
     Route: 042
     Dates: start: 20160116, end: 20160129
  57. ERYTHROPOIETIN HUMAN [Concomitant]
     Dosage: 9999 IU, PRN
     Route: 042
     Dates: start: 20160228, end: 20160228
  58. PROMETHAZINE HYDROCHLORIDE. [Concomitant]
     Active Substance: PROMETHAZINE HYDROCHLORIDE
     Dosage: 25 MG, PRN
     Route: 030
     Dates: start: 20160126, end: 20160126
  59. PROMETHAZINE HYDROCHLORIDE. [Concomitant]
     Active Substance: PROMETHAZINE HYDROCHLORIDE
     Dosage: 25 MG, QD
     Route: 030
     Dates: start: 20160126, end: 20160201
  60. PROMETHAZINE HYDROCHLORIDE. [Concomitant]
     Active Substance: PROMETHAZINE HYDROCHLORIDE
     Dosage: 25 MG, QD
     Route: 030
     Dates: start: 20160205, end: 20160205
  61. CICLOSPORIN [Suspect]
     Active Substance: CYCLOSPORINE
     Dosage: 225 MG, QD
     Route: 065
     Dates: start: 20160225, end: 20160301
  62. PREDNISONE. [Suspect]
     Active Substance: PREDNISONE
     Dosage: 20 MG, QD
     Route: 065
     Dates: start: 20160201, end: 20160213
  63. TACROLIMUS. [Suspect]
     Active Substance: TACROLIMUS
     Dosage: 4.5 MG, QD
     Route: 065
     Dates: start: 20160119, end: 20160125
  64. SODIUM CHLORIDE. [Concomitant]
     Active Substance: SODIUM CHLORIDE
     Dosage: 50 ML, QD
     Route: 042
     Dates: start: 20160122, end: 20160122
  65. SODIUM CHLORIDE. [Concomitant]
     Active Substance: SODIUM CHLORIDE
     Dosage: 100 ML, PRN
     Route: 042
     Dates: start: 20160205, end: 20160205
  66. RECOMBINANT HUMAN ERYTHROPOIETIN [Concomitant]
     Active Substance: ERYTHROPOIETIN
     Dosage: 6000 IU, PRN
     Route: 042
     Dates: start: 20160207, end: 20160207
  67. METRONIDAZOLE. [Concomitant]
     Active Substance: METRONIDAZOLE
     Dosage: 1600 MG, PRN
     Route: 049
     Dates: start: 20160217, end: 20160217
  68. IPRATROPIUM BROMIDE. [Concomitant]
     Active Substance: IPRATROPIUM BROMIDE
     Indication: LUNG DISORDER
     Dosage: 1 MG, TID
     Route: 055
     Dates: start: 20160123, end: 20160129
  69. CRAVIT [Concomitant]
     Active Substance: LEVOFLOXACIN
     Indication: ANTIINFLAMMATORY THERAPY
     Dosage: 100 ML, PRN
     Route: 042
     Dates: start: 20160115, end: 20160115
  70. CRAVIT [Concomitant]
     Active Substance: LEVOFLOXACIN
     Dosage: 100 ML, QD
     Route: 048
     Dates: start: 20160211, end: 20160211
  71. LIVARACINE [Concomitant]
     Indication: ANTICOAGULANT THERAPY
     Dosage: 2500 IU, QD
     Route: 042
     Dates: start: 20160119, end: 20160201
  72. LIVARACINE [Concomitant]
     Dosage: 2500 IU, PRN
     Route: 042
     Dates: start: 20160205, end: 20160205
  73. ALPROSTADIL. [Concomitant]
     Active Substance: ALPROSTADIL
     Dosage: 10 UG, PRN
     Route: 042
     Dates: start: 20160116, end: 20160116
  74. MICARDIS [Concomitant]
     Active Substance: TELMISARTAN
     Dosage: 80 MG, PRN
     Route: 048
     Dates: start: 20160131, end: 20160131
  75. BUDESONIDE. [Concomitant]
     Active Substance: BUDESONIDE
     Dosage: 1 DF (VIAL), TID
     Route: 055
     Dates: start: 20160123, end: 20160129
  76. SCOPOLAMINE HYDROBROMIDE. [Concomitant]
     Active Substance: SCOPOLAMINE HYDROBROMIDE
     Indication: GASTROINTESTINAL DISORDER
     Dosage: 300 UG, PRN
     Route: 030
     Dates: start: 20160115, end: 20160115
  77. IRON SUCROSE [Concomitant]
     Active Substance: IRON SUCROSE
     Dosage: 1 DF, PRN
     Route: 042
     Dates: start: 20160201, end: 20160201
  78. CEFOPERAZONE SODIUM AND SULBACTAM SODIUM [Concomitant]
     Active Substance: CEFOPERAZONE SODIUM\SULBACTAM SODIUM
     Indication: ANTIINFLAMMATORY THERAPY
     Dosage: 1500 MG, PRN
     Route: 042
     Dates: start: 20160207, end: 20160207
  79. CEFOPERAZONE SODIUM AND SULBACTAM SODIUM [Concomitant]
     Active Substance: CEFOPERAZONE SODIUM\SULBACTAM SODIUM
     Indication: INFECTION PROPHYLAXIS
     Dosage: 1500 MG, BID
     Route: 042
     Dates: start: 20160207, end: 20160214
  80. SMECTA [Concomitant]
     Active Substance: MONTMORILLONITE
     Indication: DIARRHOEA
     Dosage: 9 G, PRN
     Route: 048
     Dates: start: 20160120, end: 20160120
  81. FUROSEMIDE. [Concomitant]
     Active Substance: FUROSEMIDE
     Dosage: 40 MG, PRN
     Route: 042
     Dates: start: 20160217, end: 20160217
  82. CETIRIZINE HYDROCHLORIDE. [Concomitant]
     Active Substance: CETIRIZINE HYDROCHLORIDE
     Dosage: 10 MG, PRN
     Route: 048
     Dates: start: 20160129, end: 20160129
  83. DOPAMINE HYDROCHLORIDE. [Concomitant]
     Active Substance: DOPAMINE HYDROCHLORIDE
     Indication: PERIPHERAL VASCULAR DISORDER
     Dosage: 10 MG, QD
     Route: 042
     Dates: start: 20160204, end: 20160309
  84. GLUTATHIONE [Concomitant]
     Active Substance: GLUTATHIONE
     Dosage: 900 MG, QD
     Route: 048
     Dates: start: 20160116, end: 20160122
  85. MYFORTIC [Suspect]
     Active Substance: MYCOPHENOLATE SODIUM
     Dosage: 360 MG, QD
     Route: 048
     Dates: start: 20160217, end: 20160225
  86. MYFORTIC [Suspect]
     Active Substance: MYCOPHENOLATE SODIUM
     Dosage: 540 MG, QD
     Route: 048
     Dates: start: 20160226, end: 20160301
  87. MYFORTIC [Suspect]
     Active Substance: MYCOPHENOLATE SODIUM
     Dosage: 720 MG, QD
     Route: 048
     Dates: start: 20160302
  88. BASILIXIMAB [Suspect]
     Active Substance: BASILIXIMAB
     Indication: PRODUCT USED FOR UNKNOWN INDICATION
     Dosage: 20 MG, QD
     Route: 065
     Dates: start: 20160116, end: 20160116
  89. METHYLPREDNISOLONE. [Suspect]
     Active Substance: METHYLPREDNISOLONE
     Dosage: 40 MG, PRN
     Route: 048
     Dates: start: 20160122, end: 20160122
  90. NITRENDIPINE [Concomitant]
     Active Substance: NITRENDIPINE
     Indication: HYPERTENSION
     Dosage: 10 MG, PRN
     Route: 048
     Dates: start: 20160208, end: 20160208
  91. ADALAT [Concomitant]
     Active Substance: NIFEDIPINE
     Indication: HYPERTENSION
     Dosage: 30 MG, PRN
     Route: 048
     Dates: start: 20160116, end: 20160116
  92. METRONIDAZOLE. [Concomitant]
     Active Substance: METRONIDAZOLE
     Indication: ANTIINFLAMMATORY THERAPY
     Dosage: 1600 MG, PRN
     Route: 049
     Dates: start: 20160214, end: 20160214
  93. IPRATROPIUM BROMIDE. [Concomitant]
     Active Substance: IPRATROPIUM BROMIDE
     Indication: SPUTUM RETENTION
     Dosage: 1 DF (VIAL), QD
     Route: 055
     Dates: start: 20160116, end: 20160129
  94. CRAVIT [Concomitant]
     Active Substance: LEVOFLOXACIN
     Dosage: 5 ML, PRN
     Route: 047
     Dates: start: 20160228, end: 20160228
  95. MICARDIS [Concomitant]
     Active Substance: TELMISARTAN
     Indication: HYPERTENSION
     Dosage: 80 MG, BID
     Route: 048
     Dates: start: 20160202, end: 20160203
  96. PANTOPRAZOLE [Concomitant]
     Active Substance: PANTOPRAZOLE SODIUM
     Dosage: 40 MG, PRN
     Route: 048
     Dates: start: 20160116, end: 20160116
  97. IRON SUCROSE [Concomitant]
     Active Substance: IRON SUCROSE
     Dosage: 1 DF, PRN
     Route: 042
     Dates: start: 20160205, end: 20160205
  98. IRON SUCROSE [Concomitant]
     Active Substance: IRON SUCROSE
     Dosage: 1 DF, PRN
     Route: 042
     Dates: start: 20160224, end: 20160224
  99. SODIUM BICARBONATE. [Concomitant]
     Active Substance: SODIUM BICARBONATE
     Dosage: 500 ML, PRN
     Route: 049
     Dates: start: 20160217, end: 20160217
  100. DILTIAZEM HYDROCHLORIDE. [Concomitant]
     Active Substance: DILTIAZEM HYDROCHLORIDE
     Indication: PRODUCT USED FOR UNKNOWN INDICATION
     Dosage: 30 MG, BID
     Route: 048
     Dates: start: 20160116, end: 20160201
  101. FUROSEMIDE. [Concomitant]
     Active Substance: FUROSEMIDE
     Dosage: 80 MG, PRN
     Route: 042
     Dates: start: 20160203, end: 20160203
  102. FUROSEMIDE. [Concomitant]
     Active Substance: FUROSEMIDE
     Dosage: 280 MG, PRN
     Route: 042
     Dates: start: 20160221, end: 20160221
  103. FUROSEMIDE. [Concomitant]
     Active Substance: FUROSEMIDE
     Dosage: 40 MG, PRN
     Route: 042
     Dates: start: 20160226, end: 20160226
  104. INSULIN [Concomitant]
     Active Substance: INSULIN NOS
     Dosage: 14 IU, PRN
     Route: 042
     Dates: start: 20160123, end: 20160123
  105. ERYTHROPOIETIN HUMAN [Concomitant]
     Dosage: 9999 IU, PRN
     Route: 042
     Dates: start: 20160125, end: 20160125
  106. PROMETHAZINE HYDROCHLORIDE. [Concomitant]
     Active Substance: PROMETHAZINE HYDROCHLORIDE
     Indication: HYPERSENSITIVITY
     Dosage: 25 MG, PRN
     Route: 030
     Dates: start: 20160122, end: 20160122
  107. MYFORTIC [Suspect]
     Active Substance: MYCOPHENOLATE SODIUM
     Dosage: 360 MG, QD
     Route: 048
     Dates: start: 20160202, end: 20160216
  108. PREDNISONE. [Suspect]
     Active Substance: PREDNISONE
     Dosage: 15 MG, QD
     Route: 065
     Dates: start: 20160214
  109. TACROLIMUS. [Suspect]
     Active Substance: TACROLIMUS
     Dosage: 1.5 MG, QD
     Route: 065
     Dates: start: 20160126, end: 20160129
  110. TACROLIMUS. [Suspect]
     Active Substance: TACROLIMUS
     Dosage: 3.5 MG, QD
     Route: 065
     Dates: start: 20160201, end: 20160213
  111. SODIUM CHLORIDE. [Concomitant]
     Active Substance: SODIUM CHLORIDE
     Dosage: 100 ML, PRN
     Route: 042
     Dates: start: 20160116, end: 20160116
  112. SODIUM CHLORIDE. [Concomitant]
     Active Substance: SODIUM CHLORIDE
     Dosage: 10 ML, QD
     Route: 042
     Dates: start: 20160126, end: 20160201
  113. ALBUMIN [Concomitant]
     Active Substance: ALBUMIN HUMAN
     Dosage: 10 G, PRN
     Route: 042
     Dates: start: 20160203, end: 20160203
  114. BISOPROLOL FUMARATE. [Concomitant]
     Active Substance: BISOPROLOL FUMARATE
     Indication: HYPERTENSION
     Dosage: 5 MG, PRN
     Route: 048
     Dates: start: 20160119, end: 20160119
  115. RECOMBINANT HUMAN ERYTHROPOIETIN [Concomitant]
     Active Substance: ERYTHROPOIETIN
     Dosage: 6000 IU, PRN
     Route: 042
     Dates: start: 20160213, end: 20160213
  116. PANTOPRAZOLE [Concomitant]
     Active Substance: PANTOPRAZOLE SODIUM
     Dosage: 40 MG, PRN
     Route: 042
     Dates: start: 20160116, end: 20160116
  117. IRON SUCROSE [Concomitant]
     Active Substance: IRON SUCROSE
     Dosage: 1 DF, PRN
     Route: 042
     Dates: start: 20160127, end: 20160127
  118. IRON SUCROSE [Concomitant]
     Active Substance: IRON SUCROSE
     Dosage: 1 DF, PRN
     Route: 042
     Dates: start: 20160221, end: 20160221
  119. FUROSEMIDE. [Concomitant]
     Active Substance: FUROSEMIDE
     Dosage: 40 MG, PRN
     Route: 042
     Dates: start: 20160215, end: 20160215
  120. FUROSEMIDE. [Concomitant]
     Active Substance: FUROSEMIDE
     Dosage: 80 MG, PRN
     Route: 042
     Dates: start: 20160304, end: 20160304
  121. CETIRIZINE HYDROCHLORIDE. [Concomitant]
     Active Substance: CETIRIZINE HYDROCHLORIDE
     Indication: ANTIALLERGIC THERAPY
     Dosage: 10 MG, QD
     Route: 048
     Dates: start: 20160122, end: 20160122
  122. MUCOSOLVAN [Concomitant]
     Active Substance: AMBROXOL HYDROCHLORIDE
     Indication: PRODUCTIVE COUGH
     Dosage: 15 MG, TID
     Route: 055
     Dates: start: 20160116, end: 20160129
  123. DICLOFENAC SODIUM W/LIDOCAINE HYDROCHLORIDE [Concomitant]
     Indication: PAIN
     Dosage: 1 DF (VIAL), PRN
     Route: 030
     Dates: start: 20160119, end: 20160119
  124. ERYTHROPOIETIN HUMAN [Concomitant]
     Dosage: 9999 IU, PRN
     Route: 042
     Dates: start: 20160217, end: 20160217
  125. MYFORTIC [Suspect]
     Active Substance: MYCOPHENOLATE SODIUM
     Dosage: 540 MG, QD
     Route: 048
     Dates: start: 20160201, end: 20160204
  126. BASILIXIMAB [Suspect]
     Active Substance: BASILIXIMAB
     Dosage: 20 MG, QD
     Route: 065
     Dates: start: 20160119, end: 20160119
  127. METHYLPREDNISOLONE. [Suspect]
     Active Substance: METHYLPREDNISOLONE
     Indication: PRODUCT USED FOR UNKNOWN INDICATION
     Dosage: 500 MG, QD
     Route: 065
     Dates: start: 20160115, end: 20160117
  128. TACROLIMUS. [Suspect]
     Active Substance: TACROLIMUS
     Dosage: 3.5 MG, QD
     Route: 065
     Dates: start: 20160130, end: 20160131
  129. SODIUM CHLORIDE. [Concomitant]
     Active Substance: SODIUM CHLORIDE
     Indication: PRODUCT USED FOR UNKNOWN INDICATION
     Dosage: 100 ML, PRN
     Route: 042
     Dates: start: 20160115, end: 20160115
  130. SODIUM CHLORIDE. [Concomitant]
     Active Substance: SODIUM CHLORIDE
     Dosage: 200 ML, PRN
     Route: 042
     Dates: start: 20160129, end: 20160129
  131. ADALAT [Concomitant]
     Active Substance: NIFEDIPINE
     Dosage: 30 MG, BID
     Route: 048
     Dates: start: 20160121, end: 20160222
  132. RECOMBINANT HUMAN ERYTHROPOIETIN [Concomitant]
     Active Substance: ERYTHROPOIETIN
     Dosage: 6000 IU, PRN
     Route: 042
     Dates: start: 20160205, end: 20160205
  133. LIPITOR [Concomitant]
     Active Substance: ATORVASTATIN CALCIUM
     Indication: HYPERTENSION
     Dosage: 10 MG, QD
     Route: 048
     Dates: start: 20160211, end: 20160214
  134. MICARDIS [Concomitant]
     Active Substance: TELMISARTAN
     Dosage: 80 MG, PRN
     Route: 048
     Dates: start: 20160202, end: 20160202
  135. IRON SUCROSE [Concomitant]
     Active Substance: IRON SUCROSE
     Dosage: 1 DF, PRN
     Route: 042
     Dates: start: 20160213, end: 20160213
  136. IRON SUCROSE [Concomitant]
     Active Substance: IRON SUCROSE
     Dosage: 1 DF, PRN
     Route: 042
     Dates: start: 20160226, end: 20160226
  137. DILTIAZEM HYDROCHLORIDE. [Concomitant]
     Active Substance: DILTIAZEM HYDROCHLORIDE
     Dosage: 30 MG, BID
     Route: 048
     Dates: start: 20160223, end: 20160309
  138. FUROSEMIDE. [Concomitant]
     Active Substance: FUROSEMIDE
     Indication: POLYURIA
     Dosage: 120 MG, PRN
     Route: 042
     Dates: start: 20160117, end: 20160117
  139. FUROSEMIDE. [Concomitant]
     Active Substance: FUROSEMIDE
     Dosage: 40 MG, PRN
     Route: 042
     Dates: start: 20160213, end: 20160213
  140. FUROSEMIDE. [Concomitant]
     Active Substance: FUROSEMIDE
     Dosage: 40 MG, PRN
     Route: 042
     Dates: start: 20160222, end: 20160222
  141. FUROSEMIDE. [Concomitant]
     Active Substance: FUROSEMIDE
     Dosage: 40 MG, PRN
     Route: 048
     Dates: start: 20160118, end: 20160118
  142. FUROSEMIDE. [Concomitant]
     Active Substance: FUROSEMIDE
     Dosage: 80 MG, PRN
     Route: 042
     Dates: start: 20160216, end: 20160216
  143. FUROSEMIDE. [Concomitant]
     Active Substance: FUROSEMIDE
     Dosage: 80 MG, PRN
     Route: 042
     Dates: start: 20160224, end: 20160224
  144. FUROSEMIDE. [Concomitant]
     Active Substance: FUROSEMIDE
     Dosage: 240 MG, PRN
     Route: 042
     Dates: start: 20160119, end: 20160119
  145. CEFOTIAM HYDROCHLORIDE [Concomitant]
     Active Substance: CEFOTIAM HYDROCHLORIDE
     Dosage: 2000 MG, QD
     Route: 048
     Dates: start: 20160116, end: 20160116
  146. HUMAN SERUM ALBUMIN [Concomitant]
     Active Substance: ALBUMIN HUMAN
     Indication: PRODUCT USED FOR UNKNOWN INDICATION
     Dosage: 10 G, PRN
     Route: 042
     Dates: start: 20160115, end: 20160115
  147. HUMAN SERUM ALBUMIN [Concomitant]
     Active Substance: ALBUMIN HUMAN
     Dosage: 10 G, PRN
     Route: 042
     Dates: start: 20160129, end: 20160129
  148. ERYTHROPOIETIN HUMAN [Concomitant]
     Dosage: 9999 IU, PRN
     Route: 042
     Dates: start: 20160127, end: 20160127
  149. CICLOSPORIN [Suspect]
     Active Substance: CYCLOSPORINE
     Dosage: 200 MG, QD
     Route: 065
     Dates: start: 20160302
  150. ALBUMIN [Concomitant]
     Active Substance: ALBUMIN HUMAN
     Indication: PRODUCT USED FOR UNKNOWN INDICATION
     Dosage: 10 G, PRN
     Route: 042
     Dates: start: 20160116, end: 20160116
  151. ALBUMIN [Concomitant]
     Active Substance: ALBUMIN HUMAN
     Dosage: 10 G, PRN
     Route: 042
     Dates: start: 20160202, end: 20160202
  152. PLENDIL [Concomitant]
     Active Substance: FELODIPINE
     Dosage: 5 MG, PRN
     Route: 048
     Dates: start: 20160124, end: 20160124
  153. RECOMBINANT HUMAN ERYTHROPOIETIN [Concomitant]
     Active Substance: ERYTHROPOIETIN
     Indication: RED BLOOD CELL COUNT DECREASED
     Dosage: 6000 IU, PRN
     Route: 042
     Dates: start: 20160201, end: 20160201
  154. RECOMBINANT HUMAN ERYTHROPOIETIN [Concomitant]
     Active Substance: ERYTHROPOIETIN
     Dosage: 6000 IU, PRN
     Route: 042
     Dates: start: 20160211, end: 20160211
  155. LANSOPRAZOLE. [Concomitant]
     Active Substance: LANSOPRAZOLE
     Indication: GASTRITIS PROPHYLAXIS
     Dosage: 30 MG, QD
     Route: 048
     Dates: start: 20160203, end: 20160309
  156. ALPROSTADIL. [Concomitant]
     Active Substance: ALPROSTADIL
     Indication: PERIPHERAL VASCULAR DISORDER
     Dosage: 10 UG, QD
     Route: 048
     Dates: start: 20160116, end: 20160228
  157. PANTOPRAZOLE [Concomitant]
     Active Substance: PANTOPRAZOLE SODIUM
     Indication: GASTRITIS PROPHYLAXIS
     Dosage: 40 MG, QD
     Route: 042
     Dates: start: 20160116, end: 20160121
  158. IRON SUCROSE [Concomitant]
     Active Substance: IRON SUCROSE
     Dosage: 1 DF, PRN
     Route: 042
     Dates: start: 20160129, end: 20160129
  159. IRON SUCROSE [Concomitant]
     Active Substance: IRON SUCROSE
     Dosage: 1 DF, PRN
     Route: 042
     Dates: start: 20160201, end: 20160201
  160. IRON SUCROSE [Concomitant]
     Active Substance: IRON SUCROSE
     Dosage: 1 DF, PRN
     Route: 042
     Dates: start: 20160209, end: 20160209
  161. IRON SUCROSE [Concomitant]
     Active Substance: IRON SUCROSE
     Dosage: 1 DF, PRN
     Route: 042
     Dates: start: 20160211, end: 20160211
  162. SODIUM BICARBONATE. [Concomitant]
     Active Substance: SODIUM BICARBONATE
     Dosage: 500 ML, PRN
     Route: 049
     Dates: start: 20160221, end: 20160221
  163. FUROSEMIDE. [Concomitant]
     Active Substance: FUROSEMIDE
     Dosage: 320 MG, PRN
     Route: 042
     Dates: start: 20160129, end: 20160129
  164. CETIRIZINE HYDROCHLORIDE. [Concomitant]
     Active Substance: CETIRIZINE HYDROCHLORIDE
     Dosage: 10 MG, QD
     Route: 048
     Dates: start: 20160126, end: 20160201
  165. CETIRIZINE HYDROCHLORIDE. [Concomitant]
     Active Substance: CETIRIZINE HYDROCHLORIDE
     Dosage: 10 MG, PRN
     Route: 048
     Dates: start: 20160126, end: 20160126
  166. CETIRIZINE HYDROCHLORIDE. [Concomitant]
     Active Substance: CETIRIZINE HYDROCHLORIDE
     Dosage: 10 MG, PRN
     Route: 048
     Dates: start: 20160205, end: 20160205
  167. INSULIN [Concomitant]
     Active Substance: INSULIN NOS
     Indication: BLOOD GLUCOSE INCREASED
     Dosage: 6 IU, PRN
     Route: 042
     Dates: start: 20160117, end: 20160117
  168. INSULIN [Concomitant]
     Active Substance: INSULIN NOS
     Dosage: 14 IU, PRN
     Route: 042
     Dates: start: 20160224, end: 20160224
  169. DOXOFYLLINE [Concomitant]
     Active Substance: DOXOFYLLINE
     Indication: WHEEZING
     Dosage: 200 MG, PRN
     Route: 042
     Dates: start: 20160116, end: 20160116
  170. MUCOSOLVAN [Concomitant]
     Active Substance: AMBROXOL HYDROCHLORIDE
     Dosage: 15 MG, TID
     Route: 055
     Dates: start: 20160123, end: 20160129
  171. LEVOCARNITINE. [Concomitant]
     Active Substance: LEVOCARNITINE
     Indication: PROPHYLAXIS
     Dosage: 1 DF, PRN
     Route: 042
     Dates: start: 20160116, end: 20160116
  172. ERYTHROPOIETIN HUMAN [Concomitant]
     Indication: RED BLOOD CELL COUNT DECREASED
     Dosage: 9999 IU, PRN
     Route: 042
     Dates: start: 20160102, end: 20160129
  173. ERYTHROPOIETIN HUMAN [Concomitant]
     Dosage: 9999 IU, PRN
     Route: 042
     Dates: start: 20160224, end: 20160224
  174. PREDNISONE. [Suspect]
     Active Substance: PREDNISONE
     Indication: PRODUCT USED FOR UNKNOWN INDICATION
     Dosage: 20 MG, QD
     Route: 065
     Dates: start: 20160118, end: 20160126
  175. SODIUM CHLORIDE. [Concomitant]
     Active Substance: SODIUM CHLORIDE
     Dosage: 150 MG, PRN
     Route: 042
     Dates: start: 20160119, end: 20160119
  176. ALBUMIN [Concomitant]
     Active Substance: ALBUMIN HUMAN
     Dosage: 10 MG, QD
     Route: 042
     Dates: start: 20160120, end: 20160120
  177. ACARBOSE. [Concomitant]
     Active Substance: ACARBOSE
     Indication: BLOOD GLUCOSE INCREASED
     Dosage: 50 MG, TID
     Route: 048
     Dates: start: 20160225, end: 20160309
  178. PLENDIL [Concomitant]
     Active Substance: FELODIPINE
     Indication: HYPERTENSION
     Dosage: 5 MG, PRN
     Route: 048
     Dates: start: 20160120, end: 20160120
  179. METRONIDAZOLE. [Concomitant]
     Active Substance: METRONIDAZOLE
     Dosage: 1600 MG, PRN
     Route: 049
     Dates: start: 20160221, end: 20160221
  180. MICARDIS [Concomitant]
     Active Substance: TELMISARTAN
     Dosage: 80 MG, PRN
     Route: 048
     Dates: start: 20160209, end: 20160209
  181. CALCIUM GLUCONATE. [Concomitant]
     Active Substance: CALCIUM GLUCONATE
     Indication: PRODUCT USED FOR UNKNOWN INDICATION
     Dosage: 10 ML, PRN
     Route: 042
     Dates: start: 20160117, end: 20160117
  182. CYMEVENE [Concomitant]
     Active Substance: GANCICLOVIR
     Indication: ANTIVIRAL PROPHYLAXIS
     Dosage: 250 MG, BID
     Route: 042
     Dates: start: 20160216, end: 20160222
  183. CYMEVENE [Concomitant]
     Active Substance: GANCICLOVIR
     Dosage: 250 MG, BID
     Route: 042
     Dates: start: 20160222, end: 20160229
  184. IRON SUCROSE [Concomitant]
     Active Substance: IRON SUCROSE
     Dosage: 1 DF, PRN
     Route: 042
     Dates: start: 20160217, end: 20160217
  185. IRON SUCROSE [Concomitant]
     Active Substance: IRON SUCROSE
     Dosage: 1 DF, PRN
     Route: 042
     Dates: start: 20160228, end: 20160228
  186. CEFOTIAM HYDROCHLORIDE [Concomitant]
     Active Substance: CEFOTIAM HYDROCHLORIDE
     Dosage: 2000 MG, QD
     Route: 048
     Dates: start: 20160116, end: 20160116
  187. FUROSEMIDE. [Concomitant]
     Active Substance: FUROSEMIDE
     Dosage: 40 MG, PRN
     Route: 042
     Dates: start: 20160307, end: 20160307
  188. VASOREL [Concomitant]
     Indication: PROPHYLAXIS
     Dosage: 20 MG, TID
     Route: 048
     Dates: start: 20160117, end: 20160309
  189. PHOSPHOCREATINE SODIUM [Concomitant]
     Indication: PROPHYLAXIS
     Dosage: 1 G, QD
     Route: 042
     Dates: start: 20160116, end: 20160116
  190. PHOSPHOCREATINE SODIUM [Concomitant]
     Dosage: 1000 MG, QD
     Route: 042
     Dates: start: 20160116, end: 20160122
  191. DOXOFYLLINE [Concomitant]
     Active Substance: DOXOFYLLINE
     Indication: COUGH
     Dosage: 200 MG, QD
     Route: 042
     Dates: start: 20160116, end: 20160129
  192. CEPHAZOLINE SODIUM [Concomitant]
     Active Substance: CEFAZOLIN SODIUM
     Indication: SKIN TEST
     Dosage: 500 MG, PRN
     Route: 042
     Dates: start: 20160116, end: 20160116
  193. LEVOCARNITINE. [Concomitant]
     Active Substance: LEVOCARNITINE
     Dosage: 1 DF, QD
     Route: 042
     Dates: start: 20160116, end: 20160122
  194. GLUTAMINE [Concomitant]
     Active Substance: GLUTAMINE
     Indication: PROPHYLAXIS
     Dosage: 670 MG, TID
     Route: 048
     Dates: start: 20160118, end: 20160122
  195. HUMAN SERUM ALBUMIN [Concomitant]
     Active Substance: ALBUMIN HUMAN
     Dosage: 10 G, PRN
     Route: 042
     Dates: start: 20160201, end: 20160201
  196. GLUTATHIONE [Concomitant]
     Active Substance: GLUTATHIONE
     Indication: PROPHYLAXIS
     Dosage: 900 MG, PRN
     Route: 042
     Dates: start: 20160116, end: 20160116

REACTIONS (13)
  - Platelet count decreased [Unknown]
  - Dyspnoea [Recovered/Resolved]
  - Hyperlipidaemia [Unknown]
  - Lymphocyte count decreased [Unknown]
  - Incision site pain [Recovered/Resolved]
  - Diabetes mellitus [Unknown]
  - Chest discomfort [Recovered/Resolved]
  - Kidney transplant rejection [Recovered/Resolved]
  - Complications of transplanted kidney [Recovered/Resolved]
  - Mouth ulceration [Recovered/Resolved]
  - Haemoglobin decreased [Unknown]
  - White blood cell count increased [Unknown]
  - Neutrophil count increased [Unknown]

NARRATIVE: CASE EVENT DATE: 20160116
